FAERS Safety Report 6781871-0 (Version None)
Quarter: 2010Q2

REPORT INFORMATION
  Report Type: 
  Country: None (occurrence: None)
  Receive Date: 20100618
  Receipt Date: 20100618
  Transmission Date: 20101027
  Serious: Yes (Hospitalization)
  Sender: FDA-Public Use
  Company Number: None

PATIENT
  Age: 75 Year
  Sex: Female

DRUGS (1)
  1. COUMADIN [Suspect]
     Dosage: 3 X 1MG TABS DAILY PO
     Route: 048

REACTIONS (2)
  - HAEMORRHAGE [None]
  - INCORRECT DOSE ADMINISTERED [None]
